FAERS Safety Report 12336785 (Version 2)
Quarter: 2016Q2

REPORT INFORMATION
  Report Type: Spontaneous
  Country: CH (occurrence: CH)
  Receive Date: 20160505
  Receipt Date: 20160505
  Transmission Date: 20160815
  Serious: Yes (Life-Threatening)
  Sender: FDA-Public Use
  Company Number: CH-ACTAVIS-2016-08978

PATIENT
  Age: 86 Year
  Sex: Female

DRUGS (5)
  1. FENTANYL (UNKNOWN) [Suspect]
     Active Substance: FENTANYL
     Indication: PAIN
     Dosage: 12 ?G, DAILY
     Route: 041
  2. PETHIDINE [Suspect]
     Active Substance: MEPERIDINE
     Indication: PAIN
     Dosage: 768 MG, DAILY
     Route: 041
     Dates: start: 20151228, end: 20151231
  3. ESCITALOPRAM [Suspect]
     Active Substance: ESCITALOPRAM OXALATE
     Indication: DEPRESSION
     Dosage: 10 MG, DAILY
     Route: 048
     Dates: start: 20151223, end: 20151229
  4. OXYCODONE (UNKNOWN) [Suspect]
     Active Substance: OXYCODONE
     Indication: PAIN
     Dosage: 20 MG, DAILY
     Route: 048
     Dates: start: 20151223, end: 20160102
  5. MIRTAZAPINE. [Suspect]
     Active Substance: MIRTAZAPINE
     Indication: DEPRESSION
     Dosage: 15 MG, DAILY
     Route: 048
     Dates: start: 20151222, end: 20151229

REACTIONS (9)
  - Tremor [Recovered/Resolved]
  - Hyperreflexia [Recovered/Resolved]
  - Hyperhidrosis [Recovered/Resolved]
  - Hypertonia [Recovered/Resolved]
  - Pyrexia [Recovered/Resolved]
  - Clonus [Recovered/Resolved]
  - Serotonin syndrome [Recovered/Resolved]
  - Agitation [Recovered/Resolved]
  - Drug interaction [Recovered/Resolved]

NARRATIVE: CASE EVENT DATE: 20151229
